FAERS Safety Report 21139605 (Version 1)
Quarter: 2022Q3

REPORT INFORMATION
  Report Type: Report from Study
  Country: US (occurrence: US)
  Receive Date: 20220727
  Receipt Date: 20220727
  Transmission Date: 20221026
  Serious: Yes (Other)
  Sender: FDA-Public Use
  Company Number: US-BRISTOL-MYERS SQUIBB COMPANY-2022-070456

PATIENT
  Age: 40 Year
  Sex: Male
  Weight: 92.986 kg

DRUGS (1)
  1. THALOMID [Suspect]
     Active Substance: THALIDOMIDE
     Indication: Type 2 lepra reaction
     Dosage: AT BEDTIME
     Route: 048
     Dates: start: 202012

REACTIONS (2)
  - Peripheral swelling [Unknown]
  - Joint swelling [Unknown]
